FAERS Safety Report 5291863-9 (Version None)
Quarter: 2007Q2

REPORT INFORMATION
  Report Type: 
  Country: None (occurrence: None)
  Receive Date: 20070406
  Receipt Date: 20070406
  Transmission Date: 20071010
  Serious: Yes (Hospitalization)
  Sender: FDA-Public Use
  Company Number: None

PATIENT
  Age: 86 Year
  Sex: Male

DRUGS (2)
  1. LISINOPRIL [Suspect]
     Indication: HYPERTENSION
     Dosage: 10 MG DAILY PO
     Route: 048
  2. TRIMETHOPRIM + SULFAMETHOXAZOLE [Suspect]
     Indication: INFECTION
     Dosage: 600MG/160MG TAB BID PO
     Route: 048

REACTIONS (4)
  - DRUG INTERACTION [None]
  - HYPERKALAEMIA [None]
  - IRRITABILITY [None]
  - OVERDOSE [None]
